FAERS Safety Report 14388913 (Version 3)
Quarter: 2018Q3

REPORT INFORMATION
  Report Type: Spontaneous
  Country: US (occurrence: US)
  Receive Date: 20180115
  Receipt Date: 20180726
  Transmission Date: 20181010
  Serious: Yes (Other)
  Sender: FDA-Public Use
  Company Number: US-SA-2017SA230496

PATIENT
  Age: 66 Year
  Sex: Female
  Weight: 58.96 kg

DRUGS (28)
  1. TAXOTERE [Suspect]
     Active Substance: DOCETAXEL
     Indication: INVASIVE DUCTAL BREAST CARCINOMA
     Dosage: UNK UNK,Q3W
     Route: 042
     Dates: start: 20140404, end: 20140404
  2. TRAMADOL. [Concomitant]
     Active Substance: TRAMADOL
     Dosage: UNK UNK,UNK
     Route: 065
     Dates: start: 20150315
  3. FLUTICASONE. [Concomitant]
     Active Substance: FLUTICASONE
     Dosage: UNK UNK,UNK
     Route: 065
     Dates: start: 20090111
  4. ZOFRAN [ONDANSETRON HYDROCHLORIDE] [Concomitant]
  5. MUPIROCIN. [Concomitant]
     Active Substance: MUPIROCIN
  6. XANAX [Concomitant]
     Active Substance: ALPRAZOLAM
     Dosage: UNK UNK,UNK
     Route: 065
     Dates: start: 20020811
  7. ATIVAN [Concomitant]
     Active Substance: LORAZEPAM
  8. MIRAPEX [Concomitant]
     Active Substance: PRAMIPEXOLE DIHYDROCHLORIDE
  9. AROMASIN [Concomitant]
     Active Substance: EXEMESTANE
     Dosage: UNK UNK, UNK
     Route: 065
     Dates: start: 20150515
  10. PANTOPRAZOLE [Concomitant]
     Active Substance: PANTOPRAZOLE
  11. CARBOPLATIN. [Concomitant]
     Active Substance: CARBOPLATIN
  12. HERCEPTIN [Concomitant]
     Active Substance: TRASTUZUMAB
  13. TRIAMCINOLONE ACETONIDE. [Concomitant]
     Active Substance: TRIAMCINOLONE ACETONIDE
  14. BELLADONNA [Concomitant]
     Active Substance: ATROPA BELLADONNA\HOMEOPATHICS
     Dosage: UNK UNK, UNK
     Route: 065
     Dates: start: 20050315, end: 20050731
  15. PROBIOTICS NOS [Concomitant]
     Active Substance: PROBIOTICS NOS
  16. LEXAPRO [Concomitant]
     Active Substance: ESCITALOPRAM OXALATE
  17. OMEPRAZOLE. [Concomitant]
     Active Substance: OMEPRAZOLE
     Dosage: UNK UNK,UNK
     Route: 065
     Dates: start: 20000101
  18. TENORMIN [Concomitant]
     Active Substance: ATENOLOL
  19. TAXOTERE [Suspect]
     Active Substance: DOCETAXEL
     Dosage: UNK UNK,Q3W
     Route: 042
     Dates: start: 20140718, end: 20140718
  20. PREMARIN [Concomitant]
     Active Substance: ESTROGENS, CONJUGATED
     Dosage: UNK UNK, UNK
     Route: 065
     Dates: start: 20120101, end: 20171231
  21. PIROXICAM. [Concomitant]
     Active Substance: PIROXICAM
     Dosage: UNK UNK,UNK
     Route: 065
     Dates: start: 19961101
  22. ATENOLOL. [Concomitant]
     Active Substance: ATENOLOL
     Dosage: UNK UNK,UNK
     Route: 065
     Dates: start: 20080101
  23. HYDROCHLOROTHIAZIDE. [Concomitant]
     Active Substance: HYDROCHLOROTHIAZIDE
  24. SIMVASTATIN. [Concomitant]
     Active Substance: SIMVASTATIN
  25. FEMARA [Concomitant]
     Active Substance: LETROZOLE
     Dosage: UNK UNK, UNK
     Route: 065
     Dates: start: 20140914, end: 20150515
  26. NEUPOGEN [Concomitant]
     Active Substance: FILGRASTIM
  27. PRAVACHOL [Concomitant]
     Active Substance: PRAVASTATIN SODIUM
     Dosage: UNK UNK,UNK
     Route: 065
     Dates: start: 19970101
  28. BENZONATATE. [Concomitant]
     Active Substance: BENZONATATE

REACTIONS (2)
  - Psychological trauma [Unknown]
  - Alopecia [Recovering/Resolving]

NARRATIVE: CASE EVENT DATE: 20150118
